FAERS Safety Report 5065720-7 (Version None)
Quarter: 2006Q3

REPORT INFORMATION
  Report Type: 
  Country: None (occurrence: None)
  Receive Date: 20060725
  Receipt Date: 20060712
  Transmission Date: 20061208
  Serious: Yes (Life-Threatening, Hospitalization)
  Sender: FDA-Public Use
  Company Number: 2006081320

PATIENT
  Age: 50 Year
  Sex: Female
  Weight: 51 kg

DRUGS (3)
  1. SUTENT [Suspect]
     Indication: GASTROINTESTINAL STROMAL TUMOUR
     Dosage: 50 MG (50 MG, FREQUENCY: DAILY INTERVAL: EVERY DAY), ORAL
     Route: 048
     Dates: start: 20060518, end: 20060615
  2. CEFTRIAXONE SODIUM [Concomitant]
  3. CIPROFLOXACIN [Concomitant]

REACTIONS (8)
  - ALANINE AMINOTRANSFERASE INCREASED [None]
  - ASPARTATE AMINOTRANSFERASE INCREASED [None]
  - ESCHERICHIA BACTERAEMIA [None]
  - MUCOSAL INFLAMMATION [None]
  - MYOSITIS [None]
  - ORAL MUCOSAL DISORDER [None]
  - PETECHIAE [None]
  - PURPURA [None]
